FAERS Safety Report 15006782 (Version 2)
Quarter: 2018Q2

REPORT INFORMATION
  Report Type: Report from Study
  Country: US (occurrence: US)
  Receive Date: 20180613
  Receipt Date: 20180614
  Transmission Date: 20180711
  Serious: Yes (Death, Hospitalization)
  Sender: FDA-Public Use
  Company Number: US-US WORLDMEDS, LLC-USW201802-000185

PATIENT
  Age: 57 Year
  Sex: Female
  Weight: 113.39 kg

DRUGS (7)
  1. ULTRAM [Concomitant]
     Active Substance: TRAMADOL HYDROCHLORIDE
  2. SINEMET CR [Concomitant]
     Active Substance: CARBIDOPA\LEVODOPA
  3. APOKYN [Suspect]
     Active Substance: APOMORPHINE HYDROCHLORIDE
     Indication: PARKINSON^S DISEASE
     Route: 058
     Dates: start: 20170117, end: 20180204
  4. PRAMIPEXOLE. [Concomitant]
     Active Substance: PRAMIPEXOLE
  5. LORAZEPAM. [Concomitant]
     Active Substance: LORAZEPAM
  6. SINEMET [Concomitant]
     Active Substance: CARBIDOPA\LEVODOPA
  7. ENTACAPONE. [Concomitant]
     Active Substance: ENTACAPONE

REACTIONS (4)
  - Abnormal behaviour [Unknown]
  - Somnolence [Unknown]
  - Cardiac arrest [Fatal]
  - Drug ineffective [Unknown]

NARRATIVE: CASE EVENT DATE: 20180204
